FAERS Safety Report 8475212-0 (Version None)
Quarter: 2012Q2

REPORT INFORMATION
  Report Type: 
  Country: None (occurrence: None)
  Receive Date: 20120628
  Receipt Date: 20120619
  Transmission Date: 20120825
  Serious: Yes (Hospitalization)
  Sender: FDA-Public Use
  Company Number: US-JNJFOC-20120205063

PATIENT
  Sex: Female
  Weight: 66.6 kg

DRUGS (9)
  1. PREDNISONE TAB [Concomitant]
  2. REMICADE [Suspect]
     Indication: COLITIS ULCERATIVE
     Route: 042
  3. MESALAMINE [Concomitant]
  4. ANTIBIOTICS [Concomitant]
  5. MERCAPTOPURINE [Concomitant]
  6. OMEPRAZOLE [Concomitant]
  7. ACETAMINOPHEN [Concomitant]
  8. OXYCODONE HCL [Concomitant]
  9. REMICADE [Suspect]
     Route: 042
     Dates: start: 20120118

REACTIONS (3)
  - COLITIS ULCERATIVE [None]
  - PANCREATITIS [None]
  - SMALL INTESTINAL OBSTRUCTION [None]
